FAERS Safety Report 9841573 (Version 1)
Quarter: 2014Q1

REPORT INFORMATION
  Report Type: Spontaneous
  Country: US (occurrence: US)
  Receive Date: 20140124
  Receipt Date: 20140124
  Transmission Date: 20141002
  Serious: Yes (Death, Hospitalization)
  Sender: FDA-Public Use
  Company Number: US-B.I. PHARMACEUTICALS,INC./RIDGEFIELD-2014-BI-03218BP

PATIENT
  Age: 89 Year
  Sex: Female
  Weight: 49.9 kg

DRUGS (5)
  1. PRADAXA [Suspect]
     Indication: ATRIAL FIBRILLATION
     Route: 048
     Dates: start: 201308
  2. PROLIA [Suspect]
     Indication: OSTEOPOROSIS POSTMENOPAUSAL
     Dosage: SOLUTION FOR INJECTION
     Route: 058
  3. ALDACTONE [Concomitant]
  4. CAPTOPRIL [Concomitant]
  5. LASIX [Concomitant]

REACTIONS (6)
  - Ischaemic stroke [Fatal]
  - Atrial fibrillation [Unknown]
  - Gastrointestinal haemorrhage [Unknown]
  - Haemoglobin decreased [Unknown]
  - Faeces discoloured [Unknown]
  - Gastric ulcer [Unknown]
